FAERS Safety Report 25385363 (Version 1)
Quarter: 2025Q2

REPORT INFORMATION
  Report Type: Spontaneous
  Country: FR (occurrence: FR)
  Receive Date: 20250602
  Receipt Date: 20250602
  Transmission Date: 20250716
  Serious: Yes (Life-Threatening)
  Sender: MYLAN
  Company Number: None

PATIENT
  Age: 74 Year
  Sex: Female
  Weight: 106 kg

DRUGS (56)
  1. METFORMIN [Suspect]
     Active Substance: METFORMIN HYDROCHLORIDE
     Indication: Type 2 diabetes mellitus
     Dosage: 2500 MILLIGRAM, QD
     Dates: end: 20250428
  2. METFORMIN [Suspect]
     Active Substance: METFORMIN HYDROCHLORIDE
     Dosage: 2500 MILLIGRAM, QD
     Route: 048
     Dates: end: 20250428
  3. METFORMIN [Suspect]
     Active Substance: METFORMIN HYDROCHLORIDE
     Dosage: 2500 MILLIGRAM, QD
     Route: 048
     Dates: end: 20250428
  4. METFORMIN [Suspect]
     Active Substance: METFORMIN HYDROCHLORIDE
     Dosage: 2500 MILLIGRAM, QD
     Dates: end: 20250428
  5. PERINDOPRIL [Suspect]
     Active Substance: PERINDOPRIL
     Indication: Hypertension
     Dosage: 4 MILLIGRAM, QD
  6. PERINDOPRIL [Suspect]
     Active Substance: PERINDOPRIL
     Dosage: 4 MILLIGRAM, QD
     Route: 048
  7. PERINDOPRIL [Suspect]
     Active Substance: PERINDOPRIL
     Dosage: 4 MILLIGRAM, QD
     Route: 048
  8. PERINDOPRIL [Suspect]
     Active Substance: PERINDOPRIL
     Dosage: 4 MILLIGRAM, QD
  9. CIPROFLOXACIN [Suspect]
     Active Substance: CIPROFLOXACIN
     Indication: Urinary tract infection
     Dosage: 1500 MILLIGRAM, QD
     Dates: start: 20250424, end: 20250428
  10. CIPROFLOXACIN [Suspect]
     Active Substance: CIPROFLOXACIN
     Dosage: 1500 MILLIGRAM, QD
     Route: 048
     Dates: start: 20250424, end: 20250428
  11. CIPROFLOXACIN [Suspect]
     Active Substance: CIPROFLOXACIN
     Dosage: 1500 MILLIGRAM, QD
     Route: 048
     Dates: start: 20250424, end: 20250428
  12. CIPROFLOXACIN [Suspect]
     Active Substance: CIPROFLOXACIN
     Dosage: 1500 MILLIGRAM, QD
     Dates: start: 20250424, end: 20250428
  13. LERCANIDIPINE [Concomitant]
     Active Substance: LERCANIDIPINE
  14. LERCANIDIPINE [Concomitant]
     Active Substance: LERCANIDIPINE
     Route: 065
  15. LERCANIDIPINE [Concomitant]
     Active Substance: LERCANIDIPINE
     Route: 065
  16. LERCANIDIPINE [Concomitant]
     Active Substance: LERCANIDIPINE
  17. ESOMEPRAZOLE [Concomitant]
     Active Substance: ESOMEPRAZOLE
  18. ESOMEPRAZOLE [Concomitant]
     Active Substance: ESOMEPRAZOLE
     Route: 065
  19. ESOMEPRAZOLE [Concomitant]
     Active Substance: ESOMEPRAZOLE
     Route: 065
  20. ESOMEPRAZOLE [Concomitant]
     Active Substance: ESOMEPRAZOLE
  21. ATARAX [Concomitant]
     Active Substance: HYDROXYZINE HYDROCHLORIDE
  22. ATARAX [Concomitant]
     Active Substance: HYDROXYZINE HYDROCHLORIDE
     Route: 065
  23. ATARAX [Concomitant]
     Active Substance: HYDROXYZINE HYDROCHLORIDE
     Route: 065
  24. ATARAX [Concomitant]
     Active Substance: HYDROXYZINE HYDROCHLORIDE
  25. DORZOLAMIDE HYDROCHLORIDE [Concomitant]
     Active Substance: DORZOLAMIDE HYDROCHLORIDE
  26. DORZOLAMIDE HYDROCHLORIDE [Concomitant]
     Active Substance: DORZOLAMIDE HYDROCHLORIDE
     Route: 065
  27. DORZOLAMIDE HYDROCHLORIDE [Concomitant]
     Active Substance: DORZOLAMIDE HYDROCHLORIDE
     Route: 065
  28. DORZOLAMIDE HYDROCHLORIDE [Concomitant]
     Active Substance: DORZOLAMIDE HYDROCHLORIDE
  29. TIMOLOL MALEATE [Concomitant]
     Active Substance: TIMOLOL MALEATE
  30. TIMOLOL MALEATE [Concomitant]
     Active Substance: TIMOLOL MALEATE
     Route: 065
  31. TIMOLOL MALEATE [Concomitant]
     Active Substance: TIMOLOL MALEATE
     Route: 065
  32. TIMOLOL MALEATE [Concomitant]
     Active Substance: TIMOLOL MALEATE
  33. Eludril [Concomitant]
  34. Eludril [Concomitant]
     Route: 065
  35. Eludril [Concomitant]
     Route: 065
  36. Eludril [Concomitant]
  37. SMECTA [Concomitant]
     Active Substance: MONTMORILLONITE
  38. SMECTA [Concomitant]
     Active Substance: MONTMORILLONITE
     Route: 065
  39. SMECTA [Concomitant]
     Active Substance: MONTMORILLONITE
     Route: 065
  40. SMECTA [Concomitant]
     Active Substance: MONTMORILLONITE
  41. ACETAMINOPHEN [Concomitant]
     Active Substance: ACETAMINOPHEN
  42. ACETAMINOPHEN [Concomitant]
     Active Substance: ACETAMINOPHEN
     Route: 065
  43. ACETAMINOPHEN [Concomitant]
     Active Substance: ACETAMINOPHEN
     Route: 065
  44. ACETAMINOPHEN [Concomitant]
     Active Substance: ACETAMINOPHEN
  45. Spasfon [Concomitant]
  46. Spasfon [Concomitant]
     Route: 065
  47. Spasfon [Concomitant]
     Route: 065
  48. Spasfon [Concomitant]
  49. ECONAZOLE [Concomitant]
     Active Substance: ECONAZOLE
  50. ECONAZOLE [Concomitant]
     Active Substance: ECONAZOLE
     Route: 065
  51. ECONAZOLE [Concomitant]
     Active Substance: ECONAZOLE
     Route: 065
  52. ECONAZOLE [Concomitant]
     Active Substance: ECONAZOLE
  53. ZOLPIDEM [Concomitant]
     Active Substance: ZOLPIDEM TARTRATE
  54. ZOLPIDEM [Concomitant]
     Active Substance: ZOLPIDEM TARTRATE
     Route: 065
  55. ZOLPIDEM [Concomitant]
     Active Substance: ZOLPIDEM TARTRATE
     Route: 065
  56. ZOLPIDEM [Concomitant]
     Active Substance: ZOLPIDEM TARTRATE

REACTIONS (2)
  - Acute kidney injury [Recovering/Resolving]
  - Lactic acidosis [Recovered/Resolved]

NARRATIVE: CASE EVENT DATE: 20250428
